FAERS Safety Report 7790822-1 (Version None)
Quarter: 2011Q3

REPORT INFORMATION
  Report Type: 
  Country: None (occurrence: None)
  Receive Date: 20110930
  Receipt Date: 20110921
  Transmission Date: 20111222
  Serious: Yes (Other)
  Sender: FDA-Public Use
  Company Number: US-ASTRAZENECA-2007UW16054

PATIENT
  Age: 43 Year
  Sex: Female
  Weight: 77.1 kg

DRUGS (9)
  1. NORTRIPTYLINE HCL [Concomitant]
  2. BLOOD PRESSURE MEDICATION [Concomitant]
  3. SEROQUEL [Suspect]
     Indication: DEPRESSION
     Route: 048
     Dates: start: 20061001
  4. CYMBALTA [Concomitant]
  5. SEROQUEL [Suspect]
     Indication: BIPOLAR DISORDER
     Route: 048
     Dates: start: 20061001
  6. SEROQUEL [Suspect]
     Route: 048
  7. SEROQUEL [Suspect]
     Route: 048
  8. PREMARIN [Concomitant]
  9. LOPRESSOR [Concomitant]

REACTIONS (9)
  - HYPERHIDROSIS [None]
  - CARDIAC DISORDER [None]
  - MYOCARDIAL INFARCTION [None]
  - ILL-DEFINED DISORDER [None]
  - NAUSEA [None]
  - DRY MOUTH [None]
  - DRUG INEFFECTIVE [None]
  - WEIGHT INCREASED [None]
  - DEPRESSION [None]
